FAERS Safety Report 9158284 (Version 1)
Quarter: 2013Q1

REPORT INFORMATION
  Report Type: Report from Study
  Country: FR (occurrence: FR)
  Receive Date: 20130312
  Receipt Date: 20130312
  Transmission Date: 20140127
  Serious: Yes (Hospitalization)
  Sender: FDA-Public Use
  Company Number: FR-ROCHE-1199928

PATIENT
  Age: 70 Year
  Sex: Female
  Weight: 67 kg

DRUGS (12)
  1. TOCILIZUMAB [Suspect]
     Indication: RHEUMATOID ARTHRITIS
     Route: 042
     Dates: start: 20120430
  2. TOCILIZUMAB [Suspect]
     Route: 042
     Dates: start: 20120628
  3. TOCILIZUMAB [Suspect]
     Route: 042
     Dates: start: 20120726
  4. TOCILIZUMAB [Suspect]
     Route: 042
     Dates: start: 20120823
  5. TOCILIZUMAB [Suspect]
     Route: 042
     Dates: start: 20120920
  6. TOCILIZUMAB [Suspect]
     Route: 042
     Dates: start: 20121019
  7. CORTANCYL [Concomitant]
     Route: 065
  8. CORTANCYL [Concomitant]
     Route: 065
     Dates: start: 20120410
  9. CORTANCYL [Concomitant]
     Route: 065
     Dates: start: 20120726
  10. CORTANCYL [Concomitant]
     Route: 065
     Dates: start: 20120823
  11. CORTANCYL [Concomitant]
     Route: 065
     Dates: start: 20120920
  12. CORTANCYL [Concomitant]
     Route: 065
     Dates: start: 20121019

REACTIONS (2)
  - Device dislocation [Recovered/Resolved]
  - Neutropenia [Not Recovered/Not Resolved]
